FAERS Safety Report 10256330 (Version 1)
Quarter: 2014Q2

REPORT INFORMATION
  Report Type: Spontaneous
  Country: US (occurrence: US)
  Receive Date: 20140624
  Receipt Date: 20140624
  Transmission Date: 20141212
  Serious: Yes (Hospitalization, Other)
  Sender: FDA-Public Use
  Company Number: US-ACTAVIS-2014-14008

PATIENT
  Age: 42 Year
  Sex: Male

DRUGS (7)
  1. DISULFIRAM (WATSON LABORATORIES) [Suspect]
     Indication: ALCOHOL ABUSE
     Dosage: 250 MG, BID
     Route: 065
  2. SERTRALINE [Concomitant]
     Indication: PRODUCT USED FOR UNKNOWN INDICATION
     Dosage: UNKNOWN
     Route: 065
  3. BUSPIRONE [Concomitant]
     Indication: PRODUCT USED FOR UNKNOWN INDICATION
     Dosage: UNKNOWN
     Route: 065
  4. TRAZODONE [Concomitant]
     Indication: PRODUCT USED FOR UNKNOWN INDICATION
     Dosage: UNKNOWN
     Route: 065
  5. LAMOTRIGINE [Concomitant]
     Indication: PRODUCT USED FOR UNKNOWN INDICATION
     Dosage: UNKNOWN
     Route: 065
  6. METHOCARBAMOL [Concomitant]
     Indication: PRODUCT USED FOR UNKNOWN INDICATION
     Dosage: UNKNOWN
     Route: 065
  7. GABAPENTIN [Concomitant]
     Indication: PRODUCT USED FOR UNKNOWN INDICATION
     Dosage: UNKNOWN
     Route: 065

REACTIONS (10)
  - Sinus tachycardia [Recovered/Resolved]
  - Electrocardiogram ST segment depression [Recovered/Resolved]
  - Troponin T increased [Unknown]
  - Blood creatine phosphokinase MB increased [Unknown]
  - Hypotension [Recovered/Resolved]
  - Abdominal pain upper [Unknown]
  - Confusional state [Unknown]
  - Flushing [Unknown]
  - Malaise [Unknown]
  - Alcohol interaction [Unknown]
